FAERS Safety Report 5112969-0 (Version None)
Quarter: 2006Q3

REPORT INFORMATION
  Report Type: 
  Country: None (occurrence: None)
  Receive Date: 20060921
  Receipt Date: 20060921
  Transmission Date: 20061208
  Serious: Yes (Hospitalization)
  Sender: FDA-Public Use
  Company Number: None

PATIENT
  Age: 65 Year
  Sex: Male
  Weight: 136.5 kg

DRUGS (7)
  1. FUROSEMIDE [Suspect]
     Indication: CARDIAC FAILURE CONGESTIVE
     Dosage: 40 MG QD PO [SEVERAL YEARS]
     Route: 048
  2. FUROSEMIDE [Suspect]
     Indication: CORONARY ARTERY DISEASE
     Dosage: 40 MG QD PO [SEVERAL YEARS]
     Route: 048
  3. FUROSEMIDE [Suspect]
     Indication: HYPERTENSION
     Dosage: 40 MG QD PO [SEVERAL YEARS]
     Route: 048
  4. LISINOPRIL [Suspect]
     Indication: CARDIAC FAILURE CONGESTIVE
     Dosage: 20MG QD PO [SEVERAL YEARS]
     Route: 048
  5. LISINOPRIL [Suspect]
     Indication: CORONARY ARTERY DISEASE
     Dosage: 20MG QD PO [SEVERAL YEARS]
     Route: 048
  6. LISINOPRIL [Suspect]
     Indication: HYPERTENSION
     Dosage: 20MG QD PO [SEVERAL YEARS]
     Route: 048
  7. METOPROLOL TARTRATE [Concomitant]

REACTIONS (6)
  - DEHYDRATION [None]
  - DIZZINESS POSTURAL [None]
  - HYPOTENSION [None]
  - HYPOVOLAEMIA [None]
  - INTERNATIONAL NORMALISED RATIO INCREASED [None]
  - RENAL FAILURE ACUTE [None]
